FAERS Safety Report 6921809-6 (Version None)
Quarter: 2010Q3

REPORT INFORMATION
  Report Type: 
  Country: None (occurrence: None)
  Receive Date: 20100812
  Receipt Date: 20100809
  Transmission Date: 20110219
  Serious: Yes (Death)
  Sender: FDA-Public Use
  Company Number: US-MPIJNJ-2010-04262

PATIENT

DRUGS (4)
  1. VELCADE [Suspect]
     Dosage: 1.6 MG/M2, CYCLIC
  2. RITUXIMAB [Suspect]
     Dosage: UNK
  3. CYCLOPHOSPHAMIDE [Suspect]
     Dosage: 400 MG/M2, CYCLIC
     Route: 048
  4. DEXAMETHASONE [Suspect]
     Dosage: 40 MG, CYCLIC
     Route: 048

REACTIONS (1)
  - DEATH [None]
